FAERS Safety Report 4284501-5 (Version None)
Quarter: 2004Q1

REPORT INFORMATION
  Report Type: 
  Country: None (occurrence: None)
  Receive Date: 20040130
  Receipt Date: 20040130
  Transmission Date: 20041129
  Serious: Yes (Other)
  Sender: FDA-Public Use
  Company Number: None

PATIENT
  Age: 55 Year
  Sex: Male
  Weight: 79.8331 kg

DRUGS (2)
  1. CISPLATIN [Suspect]
     Indication: CARCINOMA
     Dosage: 200 MG IV
     Route: 042
     Dates: start: 20040107
  2. RADIATION THERAPY [Concomitant]

REACTIONS (1)
  - BLOOD POTASSIUM DECREASED [None]
